FAERS Safety Report 9197193 (Version 1)
Quarter: 2013Q1

REPORT INFORMATION
  Report Type: Spontaneous
  Country: US (occurrence: None)
  Receive Date: 20120709
  Receipt Date: 20120709
  Transmission Date: 20140127
  Serious: No
  Sender: FDA-Public Use
  Company Number: 2012HGS-003557

PATIENT
  Age: 48 Year
  Sex: Female
  Weight: 74.84 kg

DRUGS (15)
  1. BENLYSTA [Suspect]
     Dosage: 1 IN 14 D
     Route: 041
     Dates: start: 20120420
  2. PLAQUENIL (HYDROXYCHLOROQUINE PHOSPHATE)(HYDROXYCHLOROQUINE PHOSPHATE) [Concomitant]
  3. ATENOLOL (ATENOLOL) [Concomitant]
  4. PREMPRO (PROVELLA-14) [Concomitant]
  5. CLARITIN (LORATADINE) [Concomitant]
  6. LORTAB (VICODIN) [Concomitant]
  7. OXYCONTIN (OXYCODONE HYDROCHLORIDE) [Concomitant]
  8. XANAX (ALPRAZOLAM) [Concomitant]
  9. ACIPHEX (RABEPRAZOLE SODIUM) [Concomitant]
  10. INDOMETHACIN (INDOMETACIN) [Concomitant]
  11. CHANTIX (VARENICLINE TARTRATE) [Concomitant]
  12. CYMBALTA (DULOXETINE HYDROCHLORIDE) [Concomitant]
  13. BENADRYL (DIPHENHYDRAMINE HYDROCHLORIDE) [Concomitant]
  14. FLEXERIL (CYCLOBENZAPRINCE HYDROCHLORIDE) [Concomitant]
  15. PERCOCET (TYLOX/00446701/) (PARACETAMOL, OXYCODONE HYDROCHLORIDE, OXYCODONE TEREPHTHALATE) [Concomitant]
     Dosage: 1 IN 14 D, INTRAVENOUS DRIP
     Route: 041
     Dates: start: 20120420

REACTIONS (8)
  - Fatigue [None]
  - Malaise [None]
  - Chest discomfort [None]
  - Hypersensitivity [None]
  - Lip swelling [None]
  - Swelling face [None]
  - Dyspnoea [None]
  - Pyrexia [None]
